FAERS Safety Report 6886971-2 (Version None)
Quarter: 2010Q3

REPORT INFORMATION
  Report Type: 
  Country: None (occurrence: None)
  Receive Date: 20100730
  Receipt Date: 20100721
  Transmission Date: 20110219
  Serious: Yes (Other)
  Sender: FDA-Public Use
  Company Number: US-JNJFOC-20100707316

PATIENT
  Sex: Female
  Weight: 96.16 kg

DRUGS (3)
  1. REMICADE [Suspect]
     Indication: CROHN'S DISEASE
     Route: 042
  2. PREDNISONE [Concomitant]
     Indication: CROHN'S DISEASE
  3. INSULIN [Concomitant]
     Indication: DIABETES MELLITUS

REACTIONS (7)
  - BLOOD TRIGLYCERIDES INCREASED [None]
  - DIARRHOEA [None]
  - DRUG EFFECT DECREASED [None]
  - ERYTHEMA [None]
  - HYPERSENSITIVITY [None]
  - PANCREATITIS [None]
  - PRURITUS [None]
